FAERS Safety Report 4429928-3 (Version None)
Quarter: 2004Q3

REPORT INFORMATION
  Report Type: 
  Country: None (occurrence: None)
  Receive Date: 20040817
  Receipt Date: 20040817
  Transmission Date: 20050211
  Serious: Yes (Life-Threatening, Hospitalization)
  Sender: FDA-Public Use
  Company Number: None

PATIENT
  Age: 12 Year
  Sex: Male
  Weight: 79 kg

DRUGS (7)
  1. VINCRISTINE [Suspect]
     Indication: LYMPHOMA
     Dosage: 2 MG IV WEEKLY X 3
     Route: 042
     Dates: start: 20040729
  2. VINCRISTINE [Suspect]
     Indication: LYMPHOMA
     Dosage: 2 MG IV WEEKLY X 3
     Route: 042
     Dates: start: 20040805
  3. VINCRISTINE [Suspect]
     Indication: LYMPHOMA
     Dosage: 2 MG IV WEEKLY X 3
     Route: 042
     Dates: start: 20040812
  4. METHOTREXATE [Suspect]
     Indication: LYMPHOMA
     Dosage: 15 MG IT X 2 (WKLY)
     Route: 037
     Dates: start: 20040729
  5. METHOTREXATE [Suspect]
     Indication: LYMPHOMA
     Dosage: 15 MG IT X 2 (WKLY)
     Route: 037
     Dates: start: 20040805
  6. PREDNISONE [Concomitant]
  7. DOXORUBICIN HCL [Concomitant]

REACTIONS (4)
  - FALL [None]
  - GRAND MAL CONVULSION [None]
  - HEMIPARESIS [None]
  - TRANSVERSE SINUS THROMBOSIS [None]
